FAERS Safety Report 14205778 (Version 2)
Quarter: 2018Q1

REPORT INFORMATION
  Report Type: Spontaneous
  Country: SE (occurrence: SE)
  Receive Date: 20171120
  Receipt Date: 20180212
  Transmission Date: 20180508
  Serious: No
  Sender: FDA-Public Use
  Company Number: SE-MYLANLABS-2017M1073126

PATIENT
  Age: 61 Year
  Sex: Female

DRUGS (2)
  1. SOMA [Suspect]
     Active Substance: CARISOPRODOL
     Dosage: UNK
     Route: 048
     Dates: start: 2018
  2. SOMA [Suspect]
     Active Substance: CARISOPRODOL
     Indication: PRODUCT USED FOR UNKNOWN INDICATION
     Dosage: UNK
     Route: 048
     Dates: start: 20180113, end: 201801

REACTIONS (2)
  - Feeling abnormal [Recovered/Resolved]
  - Hypersensitivity [Recovered/Resolved]

NARRATIVE: CASE EVENT DATE: 20180113
